FAERS Safety Report 7439583-6 (Version None)
Quarter: 2011Q2

REPORT INFORMATION
  Report Type: 
  Country: None (occurrence: None)
  Receive Date: 20110427
  Receipt Date: 20101208
  Transmission Date: 20111010
  Serious: Yes (Other)
  Sender: FDA-Public Use
  Company Number: US-BAYER-201024003NA

PATIENT
  Age: 20 Year
  Sex: Female
  Weight: 72.562 kg

DRUGS (17)
  1. ORTHO TRI-CYCLEN LO [Concomitant]
     Dosage: UNK
     Dates: start: 20091001
  2. PERCOCET [Concomitant]
  3. PERCOCET (NOS) [Concomitant]
     Indication: PAIN
     Dosage: UNK
     Dates: start: 20080101
  4. YAZ [Suspect]
     Dosage: UNK
     Dates: start: 20080101, end: 20091001
  5. YAZ [Suspect]
     Dosage: UNK
     Dates: start: 20090801
  6. RANITIDINE [Concomitant]
  7. METOCLOPRAMIDE [Concomitant]
  8. PROMETHAZINE [Concomitant]
  9. YASMIN [Suspect]
     Dosage: UNK
     Dates: start: 20080801
  10. DICYCLOMINE [Concomitant]
  11. YAZ [Suspect]
     Dosage: UNK
     Dates: start: 20080701
  12. YASMIN [Suspect]
     Dosage: UNK
     Dates: start: 20070101
  13. YASMIN [Suspect]
     Dosage: UNK
     Dates: start: 20080101, end: 20091001
  14. FLUTICASONE PROPIONATE [Concomitant]
  15. ANTIBIOTICS [Concomitant]
     Dosage: UNK
     Dates: start: 20060101, end: 20100101
  16. CLARITIN [Concomitant]
     Indication: MULTIPLE ALLERGIES
     Dosage: UNK
     Dates: start: 20080101
  17. ACETAMINOPHEN [Concomitant]
     Indication: PAIN
     Dosage: UNK UNK, PRN
     Dates: start: 20070101, end: 20080101

REACTIONS (5)
  - ABDOMINAL PAIN UPPER [None]
  - GALLBLADDER INJURY [None]
  - SCAR [None]
  - BILIARY DYSKINESIA [None]
  - CHOLECYSTITIS CHRONIC [None]
